FAERS Safety Report 17086618 (Version 1)
Quarter: 2019Q4

REPORT INFORMATION
  Report Type: Spontaneous
  Country: US (occurrence: US)
  Receive Date: 20191128
  Receipt Date: 20191128
  Transmission Date: 20200122
  Serious: Yes (Other)
  Sender: FDA-Public Use
  Company Number: US-CIPLA LTD.-2019US07688

PATIENT

DRUGS (7)
  1. LETERMOVIR [Concomitant]
     Active Substance: LETERMOVIR
     Indication: IRIDOCYCLITIS
     Dosage: 480 MILLIGRAM, DAILY
     Route: 065
  2. LETERMOVIR [Concomitant]
     Active Substance: LETERMOVIR
     Indication: CYTOMEGALOVIRUS INFECTION
  3. FOSCARNET [Concomitant]
     Active Substance: FOSCARNET
     Indication: CYTOMEGALOVIRUS INFECTION
  4. FOSCARNET [Concomitant]
     Active Substance: FOSCARNET
     Indication: IRIDOCYCLITIS
     Dosage: 2.4 MG/0.1CC, UNK
  5. VALGANCICLOVIR. [Suspect]
     Active Substance: VALGANCICLOVIR
     Indication: IRIDOCYCLITIS
     Dosage: 900 MILLIGRAM, BID
     Route: 065
  6. VALGANCICLOVIR. [Suspect]
     Active Substance: VALGANCICLOVIR
     Indication: CYTOMEGALOVIRUS INFECTION
     Dosage: 900 MILLIGRAM, QD
     Route: 065
  7. VALGANCICLOVIR. [Suspect]
     Active Substance: VALGANCICLOVIR
     Dosage: 450 MILLIGRAM
     Route: 065

REACTIONS (1)
  - Drug resistance [Unknown]
